FAERS Safety Report 17501422 (Version 1)
Quarter: 2020Q1

REPORT INFORMATION
  Report Type: Spontaneous
  Country: US (occurrence: US)
  Receive Date: 20200224
  Receipt Date: 20200224
  Transmission Date: 20200409
  Serious: No
  Sender: FDA-Public Use
  Company Number: None

PATIENT
  Age: 36 Year
  Sex: Male

DRUGS (1)
  1. EPCLUSA [Suspect]
     Active Substance: SOFOSBUVIR\VELPATASVIR
     Route: 048
     Dates: start: 20200101

REACTIONS (3)
  - Tongue discolouration [None]
  - Gastrooesophageal reflux disease [None]
  - Tonsillar disorder [None]

NARRATIVE: CASE EVENT DATE: 20200223
